FAERS Safety Report 13785739 (Version 3)
Quarter: 2017Q3

REPORT INFORMATION
  Report Type: Spontaneous
  Country: DE (occurrence: DE)
  Receive Date: 20170725
  Receipt Date: 20170829
  Transmission Date: 20171127
  Serious: Yes (Hospitalization, Other)
  Sender: FDA-Public Use
  Company Number: DE-BRISTOL-MYERS SQUIBB COMPANY-BMS-2017-064428

PATIENT
  Age: 74 Year
  Sex: Male
  Weight: 86 kg

DRUGS (13)
  1. ELIQUIS [Suspect]
     Active Substance: APIXABAN
     Indication: CEREBROVASCULAR ACCIDENT PROPHYLAXIS
     Dosage: 5 MG, BID
     Route: 048
  2. RAMIPRIL. [Concomitant]
     Active Substance: RAMIPRIL
     Indication: CARDIAC FAILURE
     Route: 065
  3. ALLOPURINOL. [Concomitant]
     Active Substance: ALLOPURINOL
     Indication: HYPERURICAEMIA
     Dosage: 300 MG, QD
     Route: 048
  4. RAMIPRIL. [Concomitant]
     Active Substance: RAMIPRIL
     Indication: HYPERTENSION
     Dosage: 10 MG, QD
     Route: 048
  5. PIRETANIDE [Concomitant]
     Active Substance: PIRETANIDE
     Indication: CARDIAC FAILURE
     Route: 065
  6. ALLOPURINOL. [Concomitant]
     Active Substance: ALLOPURINOL
     Indication: GOUT
     Route: 065
  7. PIRETANIDE [Concomitant]
     Active Substance: PIRETANIDE
     Indication: OEDEMA PERIPHERAL
     Dosage: 6 MG, QD
     Route: 048
  8. TORASEMIDE [Concomitant]
     Active Substance: TORSEMIDE
     Indication: HYPERTENSION
     Route: 065
  9. AMLODIPINE [Concomitant]
     Active Substance: AMLODIPINE BESYLATE
     Indication: CARDIAC FAILURE
     Route: 065
  10. TORASEMIDE [Concomitant]
     Active Substance: TORSEMIDE
     Indication: CARDIAC FAILURE
     Dosage: 10 MG, QD
     Route: 048
  11. TORASEMIDE [Concomitant]
     Active Substance: TORSEMIDE
     Indication: OEDEMA PERIPHERAL
     Route: 065
  12. METOPROLOL TARTRATE. [Concomitant]
     Active Substance: METOPROLOL TARTRATE
     Indication: CARDIAC FAILURE
     Dosage: 190 MG, BID
     Route: 048
  13. AMLODIPINE [Concomitant]
     Active Substance: AMLODIPINE BESYLATE
     Indication: HYPERTENSION
     Dosage: 10 MG, QD
     Route: 048

REACTIONS (15)
  - Pulmonary hypertension [Unknown]
  - Pleural fibrosis [Unknown]
  - Scoliosis [Unknown]
  - Erythema [Unknown]
  - Vasculitis [Not Recovered/Not Resolved]
  - Tinea infection [Unknown]
  - Purpura [Unknown]
  - Tricuspid valve incompetence [Unknown]
  - Contusion [Unknown]
  - Dyspnoea [Unknown]
  - Petechiae [Recovering/Resolving]
  - Bacterial infection [Unknown]
  - Ecchymosis [Unknown]
  - Thrombosis [Unknown]
  - Mitral valve incompetence [Unknown]

NARRATIVE: CASE EVENT DATE: 20170707
